FAERS Safety Report 17254897 (Version 1)
Quarter: 2020Q1

REPORT INFORMATION
  Report Type: Spontaneous
  Country: US (occurrence: US)
  Receive Date: 20200109
  Receipt Date: 20200109
  Transmission Date: 20200409
  Serious: No
  Sender: FDA-Public Use
  Company Number: US-CHILTERN-US-2019-000937

PATIENT

DRUGS (10)
  1. FLONASE [Concomitant]
     Active Substance: FLUTICASONE PROPIONATE
     Indication: NASAL CONGESTION
     Dosage: UNK, PRN
     Route: 055
  2. FISH OIL [Concomitant]
     Active Substance: FISH OIL
     Indication: HYPOVITAMINOSIS
     Dosage: 1 DF, QD
     Route: 048
  3. TURMERIC                           /01079602/ [Concomitant]
     Active Substance: HERBALS\TURMERIC
     Indication: INFLAMMATION
     Dosage: 1 DF, QD
     Route: 048
  4. PRESERVISION [Concomitant]
     Active Substance: MINERALS\VITAMINS
     Indication: HYPOVITAMINOSIS
     Dosage: 2 DF, QD
     Route: 048
  5. COENZYME Q10 [Concomitant]
     Active Substance: UBIDECARENONE
     Dosage: 1 UNK, QD
     Route: 048
  6. BERBERINE [Concomitant]
     Active Substance: BERBERINE
     Indication: BLOOD GLUCOSE INCREASED
     Dosage: 1 DF, QD
     Route: 048
  7. DORZOLAMIDE/TIMOLOL                /01419801/ [Concomitant]
     Active Substance: DORZOLAMIDE\TIMOLOL
     Indication: GLAUCOMA
     Dosage: 1 GTT, BID
     Route: 047
  8. ZYRTEC [Concomitant]
     Active Substance: CETIRIZINE HYDROCHLORIDE
     Indication: HYPERSENSITIVITY
     Dosage: UNK, PRN
     Route: 048
  9. ROCKLATAN [Suspect]
     Active Substance: LATANOPROST\NETARSUDIL MESYLATE
     Indication: GLAUCOMA
     Dosage: 1 GTT, QD
     Route: 047
     Dates: start: 20191112
  10. CINNAMON                           /01647501/ [Concomitant]
     Active Substance: CINNAMON\HERBALS
     Indication: BLOOD GLUCOSE INCREASED
     Dosage: 1 DF, BID
     Route: 048

REACTIONS (3)
  - Foreign body sensation in eyes [Unknown]
  - Conjunctival hyperaemia [Not Recovered/Not Resolved]
  - Dry eye [Unknown]

NARRATIVE: CASE EVENT DATE: 20191113
